FAERS Safety Report 24019177 (Version 1)
Quarter: 2024Q2

REPORT INFORMATION
  Report Type: Spontaneous
  Country: US (occurrence: US)
  Receive Date: 20240627
  Receipt Date: 20240627
  Transmission Date: 20240716
  Serious: No
  Sender: FDA-Public Use
  Company Number: US-TEVA-VS-3211427

PATIENT
  Age: 67 Year
  Sex: Male

DRUGS (1)
  1. AMOXICILLIN [Suspect]
     Active Substance: AMOXICILLIN
     Indication: Tooth infection
     Route: 048
     Dates: start: 20240111, end: 20240120

REACTIONS (3)
  - Asthenia [Unknown]
  - Fatigue [Unknown]
  - Hypersomnia [Unknown]
